FAERS Safety Report 12328688 (Version 1)
Quarter: 2016Q2

REPORT INFORMATION
  Report Type: Spontaneous
  Country: US (occurrence: US)
  Receive Date: 20160503
  Receipt Date: 20160503
  Transmission Date: 20160815
  Serious: No
  Sender: FDA-Public Use
  Company Number: US-BEH-2015050179

PATIENT
  Age: 35 Year
  Sex: Female
  Weight: 90 kg

DRUGS (13)
  1. EPIPEN [Concomitant]
     Active Substance: EPINEPHRINE
  2. WELLBUTRIN XL [Concomitant]
     Active Substance: BUPROPION HYDROCHLORIDE
     Dosage: XL;ER 24 HOUR
     Route: 048
  3. GABAPENTIN. [Concomitant]
     Active Substance: GABAPENTIN
     Route: 048
  4. HIZENTRA [Suspect]
     Active Substance: HUMAN IMMUNOGLOBULIN G
     Indication: IMMUNODEFICIENCY COMMON VARIABLE
     Dosage: 4 GM 20 ML VIAL; 3RD INFUSION; 8 GM WEEKLY
     Route: 058
     Dates: start: 20150405, end: 20150405
  5. ZITHROMAX [Concomitant]
     Active Substance: AZITHROMYCIN DIHYDRATE
     Route: 048
  6. AMITRIPTYLINE HCL [Concomitant]
     Active Substance: AMITRIPTYLINE
     Route: 048
  7. PROTONIX [Concomitant]
     Active Substance: PANTOPRAZOLE SODIUM
     Dosage: DR
     Route: 048
  8. HIZENTRA [Suspect]
     Active Substance: HUMAN IMMUNOGLOBULIN G
     Dosage: 4 G 20 ML VIAL; 8 GM WEEKLY
     Route: 058
     Dates: start: 20150313, end: 20150313
  9. HIZENTRA [Suspect]
     Active Substance: HUMAN IMMUNOGLOBULIN G
     Dosage: 8 GM WEEKLY
     Route: 058
  10. ACETAMINOPHEN. [Concomitant]
     Active Substance: ACETAMINOPHEN
  11. HIZENTRA [Suspect]
     Active Substance: HUMAN IMMUNOGLOBULIN G
     Dosage: 8 GM WEEKLY
     Route: 058
  12. DIPHENHYDRAMINE. [Concomitant]
     Active Substance: DIPHENHYDRAMINE
  13. LIPITOR [Concomitant]
     Active Substance: ATORVASTATIN CALCIUM
     Route: 048

REACTIONS (6)
  - Infusion site pain [Not Recovered/Not Resolved]
  - Tenderness [Unknown]
  - Malaise [Unknown]
  - Infusion site erythema [Unknown]
  - Migraine [Unknown]
  - Infusion site swelling [Not Recovered/Not Resolved]

NARRATIVE: CASE EVENT DATE: 20150405
